FAERS Safety Report 11993259 (Version 2)
Quarter: 2016Q3

REPORT INFORMATION
  Report Type: Spontaneous
  Country: US (occurrence: US)
  Receive Date: 20160203
  Receipt Date: 20160825
  Transmission Date: 20161109
  Serious: Yes (Death, Hospitalization, Other)
  Sender: FDA-Public Use
  Company Number: US-009507513-1602USA001371

PATIENT
  Sex: Female
  Weight: 74.45 kg

DRUGS (2)
  1. JANUVIA [Suspect]
     Active Substance: SITAGLIPTIN PHOSPHATE
     Indication: TYPE 2 DIABETES MELLITUS
     Dosage: 100 MG, QD
     Route: 048
     Dates: start: 20110321, end: 20130825
  2. ONGLYZA [Suspect]
     Active Substance: SAXAGLIPTIN HYDROCHLORIDE
     Indication: TYPE 2 DIABETES MELLITUS
     Dosage: 5 MG, QD
     Route: 065
     Dates: start: 20091112, end: 20100417

REACTIONS (11)
  - Pancreatic carcinoma metastatic [Fatal]
  - Staphylococcal infection [Recovered/Resolved]
  - Pulmonary mass [Unknown]
  - Ovarian cyst [Unknown]
  - Blood glucose increased [Unknown]
  - Pancreatitis [Recovered/Resolved]
  - Neuralgia [Unknown]
  - Pancreatic duct dilatation [Unknown]
  - Toothache [Unknown]
  - Pneumonia [Unknown]
  - Lymphadenopathy [Unknown]

NARRATIVE: CASE EVENT DATE: 2013
